FAERS Safety Report 7116816-7 (Version None)
Quarter: 2010Q4

REPORT INFORMATION
  Report Type: 
  Country: None (occurrence: None)
  Receive Date: 20101122
  Receipt Date: 20101110
  Transmission Date: 20110411
  Serious: Yes (Hospitalization, Other)
  Sender: FDA-Public Use
  Company Number: US-PFIZER INC-US-WYE-H18437810

PATIENT
  Sex: Male
  Weight: 89.8 kg

DRUGS (8)
  1. PROTONIX [Suspect]
     Indication: GASTROOESOPHAGEAL REFLUX DISEASE
     Dosage: UNK
     Dates: start: 20081201
  2. PROTONIX [Suspect]
     Indication: DYSPEPSIA
     Dosage: 40 MG, 1X/DAY
     Route: 048
     Dates: start: 20090218, end: 20100801
  3. XANAX [Concomitant]
     Dosage: 2 DF, 1X/DAY
  4. XANAX [Concomitant]
     Dosage: 1 MG, UNK
  5. ACETYLSALICYLIC ACID SRT [Concomitant]
     Dosage: 325 MG, 1X/DAY
  6. CARVEDILOL [Concomitant]
     Dosage: 6.25 MG, 1X/DAY
  7. PLAVIX [Concomitant]
     Dosage: 75 MG, UNK
     Dates: end: 20100101
  8. SIMVASTATIN [Concomitant]
     Dosage: 20 MG, UNK

REACTIONS (3)
  - CORONARY ARTERY BYPASS [None]
  - CORONARY ARTERY STENOSIS [None]
  - MYOCARDIAL INFARCTION [None]
